FAERS Safety Report 21049666 (Version 1)
Quarter: 2022Q3

REPORT INFORMATION
  Report Type: Spontaneous
  Country: FR (occurrence: FR)
  Receive Date: 20220706
  Receipt Date: 20220706
  Transmission Date: 20221027
  Serious: Yes (Other)
  Sender: FDA-Public Use
  Company Number: FR-EMA-DD-20220621-216281-124704

PATIENT
  Sex: Male

DRUGS (165)
  1. ZOPICLONE [Suspect]
     Active Substance: ZOPICLONE
     Indication: Product used for unknown indication
     Dosage: 7.5 MILLIGRAM DAILY; 7.5 MG, QD, THERAPY END DATE: ASKU
     Route: 065
     Dates: start: 20210930
  2. ZOPICLONE [Suspect]
     Active Substance: ZOPICLONE
     Dosage: 7.5 MILLIGRAM DAILY; 7.5 MG, QD, THERAPY END DATE: ASKU
     Route: 065
     Dates: start: 20220121
  3. ZOPICLONE [Suspect]
     Active Substance: ZOPICLONE
     Dosage: 7.5 MILLIGRAM DAILY; 7.5 MG, QD, THERAPY END DATE: ASKU
     Dates: start: 20201228
  4. ZOPICLONE [Suspect]
     Active Substance: ZOPICLONE
     Dosage: 7.5 MILLIGRAM DAILY; 7.5 MG, QD, THERAPY END DATE: ASKU
     Route: 065
     Dates: start: 20220110
  5. ZOPICLONE [Suspect]
     Active Substance: ZOPICLONE
     Dosage: 7.5 MILLIGRAM DAILY; 7.5 MG, QD, THERAPY END DATE: ASKU
     Route: 065
     Dates: start: 20220408
  6. TRAMADOL [Suspect]
     Active Substance: TRAMADOL
     Indication: Product used for unknown indication
     Dosage: 3 DOSAGE FORMS DAILY; 1 DOSAGE FORM, TID, THERAPY END DATE: ASKU, UNIT DOSE : 3 DF, OD
     Route: 065
     Dates: start: 20161004
  7. TRAMADOL [Suspect]
     Active Substance: TRAMADOL
     Dosage: 50 MILLIGRAM DAILY; 50 MG, QD, DURATION: 15 DAYS
     Route: 065
     Dates: start: 20160616, end: 2016
  8. TRAMADOL [Suspect]
     Active Substance: TRAMADOL
     Dosage: 2 DOSAGE FORMS DAILY; 1 DOSAGE FORM, BID, THERAPY END DATE: ASKU, UNIT DOSE: 2 DF, OD
     Route: 065
     Dates: start: 20170529
  9. TRAMADOL [Suspect]
     Active Substance: TRAMADOL
     Dosage: 3 DOSAGE FORMS DAILY; 1 DOSAGE FORM, TID, THERAPY END DATE: ASKU
     Dates: start: 20160818
  10. TRAMADOL [Suspect]
     Active Substance: TRAMADOL
     Dosage: 3 DOSAGE FORMS DAILY; 1 DOSAGE FORM, TID, THERAPY END DATE: ASKU, UNIT DOSE : 3 DF, OD
     Route: 065
     Dates: start: 20160722
  11. TRAMADOL [Suspect]
     Active Substance: TRAMADOL
     Dosage: 3 DOSAGE FORMS DAILY; 1 DOSAGE FORM, TID, THERAPY END DATE: ASKU,  UNIT DOSE : 3 DF, OD
     Route: 065
     Dates: start: 20160704
  12. ACETAMINOPHEN [Suspect]
     Active Substance: ACETAMINOPHEN
     Indication: Product used for unknown indication
     Dosage: UNK, THERAPY END DATE: ASKU
     Route: 065
     Dates: start: 20160616
  13. PROPRANOLOL [Suspect]
     Active Substance: PROPRANOLOL HYDROCHLORIDE
     Indication: Product used for unknown indication
     Dosage: 40 MILLIGRAM DAILY; 40 MG, QD, THERAPY END DATE: ASKU
     Route: 065
     Dates: start: 20220221
  14. PROPRANOLOL [Suspect]
     Active Substance: PROPRANOLOL HYDROCHLORIDE
     Dosage: 40 MILLIGRAM DAILY; 40 MG, QD, THERAPY END DATE: ASKU
     Route: 065
     Dates: start: 20210917
  15. PROPRANOLOL [Suspect]
     Active Substance: PROPRANOLOL HYDROCHLORIDE
     Dosage: 40 MILLIGRAM DAILY; 40 MG, QD, THERAPY END DATE: ASKU
     Route: 065
     Dates: start: 20201228
  16. CYAMEMAZINE [Suspect]
     Active Substance: CYAMEMAZINE
     Indication: Product used for unknown indication
     Dosage: AR 6 MONTHS, FORM STRENGTH: 25 MG, DURATION: 6 MONTHS,
     Dates: start: 20190903
  17. CYAMEMAZINE [Suspect]
     Active Substance: CYAMEMAZINE
     Dosage: .5 DOSAGE FORMS DAILY; 0.5 TABLET AT BEDTIME, FORM STRENGTH : 25 MG, DURATION: 1 MONTH
     Dates: start: 20171017
  18. CYAMEMAZINE [Suspect]
     Active Substance: CYAMEMAZINE
     Dosage: 1 DOSAGE FORMS DAILY; 1 TABLET IN THE EVENING, FORM STRENGTH: 25 MG, DURATION 6 MONTHS
     Dates: start: 20180828
  19. CYAMEMAZINE [Suspect]
     Active Substance: CYAMEMAZINE
     Dosage: UNKNOWN DOSAGE AT BEDTIME, FORM STRENGTH: 25 MG, FREQUENCY TIME: 1 DAY, DURATION: 1 MONTH
     Dates: start: 20180426
  20. CYAMEMAZINE [Suspect]
     Active Substance: CYAMEMAZINE
     Dosage: 1 DOSAGE FORMS DAILY; 1 DOSAGE FORM AT BEDTIME, FORM STRENGTH: 25 MG
     Dates: start: 20180615
  21. CYAMEMAZINE [Suspect]
     Active Substance: CYAMEMAZINE
     Dosage: 1 DOSAGE FORMS DAILY; 1 DOSAGE FORM IN THE EVENING AR 1 TIME, FORM STRENGTH: 25 MG
     Dates: start: 20191121
  22. CYAMEMAZINE [Suspect]
     Active Substance: CYAMEMAZINE
     Dosage: 1 DOSAGE FORMS DAILY; 1 TABLET IN THE EVENING, FREQUENCY TIME : 1 DAY, UNIT DOSE: 1 DF, STRENGTH: 25
     Dates: start: 20210917
  23. CYAMEMAZINE [Suspect]
     Active Substance: CYAMEMAZINE
     Dosage: 1 DOSAGE FORMS DAILY; 1 TABLET IN THE EVENING, UNIT DOSE: 1 DF, STRENGTH: 25 MG, DURATION : 6 MONTH,
     Dates: start: 20190307
  24. CYAMEMAZINE [Suspect]
     Active Substance: CYAMEMAZINE
     Dosage: 1 DOSAGE FORMS DAILY; 1 DOSAGE FORM IN THE EVENING, FREQUENCY TIME : 1 DAY
     Dates: start: 20220408
  25. CYAMEMAZINE [Suspect]
     Active Substance: CYAMEMAZINE
     Dosage: 25 MILLIGRAM DAILY; IN THE EVENING, UNIT DOSE: 25 MG, STRENGTH: 25 MG, FREQUENCY TIME : 1 DAY
     Dates: start: 20200417
  26. CYAMEMAZINE [Suspect]
     Active Substance: CYAMEMAZINE
     Dosage: 1 DOSAGE FORMS DAILY; 1 DOSAGE FORM AT BEDTIME AR 3 TIME, DURATION : 1 MONTH, FREQUENCY TIME : 1 DAY
     Dates: start: 20190222
  27. CYAMEMAZINE [Suspect]
     Active Substance: CYAMEMAZINE
     Dosage: 25 MILLIGRAM DAILY; IN THE EVENING, STRENGTH: 25 MG, UNIT DOSE: 25 MG, DURATION : 6 MONTH, FREQUENCY
     Dates: start: 20200504
  28. CYAMEMAZINE [Suspect]
     Active Substance: CYAMEMAZINE
     Dosage: 1 DOSAGE FORMS DAILY; 1 DOSAGE FORM AT BEDTIME, FREQUENCY TIME : 1 DAY, STRENGTH: 25 MG
     Dates: start: 20180904
  29. CYAMEMAZINE [Suspect]
     Active Substance: CYAMEMAZINE
     Dosage: 1 DOSAGE FORMS DAILY; 1 TABLET IN THE EVENING, FREQUENCY TIME : 1 DAY, STRENGTH: 25 MG
     Dates: start: 20201228
  30. CYAMEMAZINE [Suspect]
     Active Substance: CYAMEMAZINE
     Dosage: UNKNOWN DOSAGE IN THE EVENING, FREQUENCY TIME : 1 DAY, DURATION : 1 MONTH, STRENGTH: 25 MG
     Dates: start: 20180116
  31. CYAMEMAZINE [Suspect]
     Active Substance: CYAMEMAZINE
     Dosage: 1 DOSAGE FORMS DAILY; 1 DOSAGE FORM IN THE EVENING, STRENGTH: 25 MG, FREQUENCY TIME : 1 DAY
     Dates: start: 20210930
  32. CYAMEMAZINE [Suspect]
     Active Substance: CYAMEMAZINE
     Dosage: 1 DOSAGE FORMS DAILY; 1 DOSAGE FORM IN THE EVENING. ARRANGEMENT A R 2/ TIME., STRENGTH: 25 MG, FREQU
     Dates: start: 20210625
  33. CYAMEMAZINE [Suspect]
     Active Substance: CYAMEMAZINE
     Dosage: 1 DOSAGE FORMS DAILY; 1 TABLET IN THE EVENING, FREQUENCY TIME : 1 DAY, STRENGTH: 25 MG,
     Dates: start: 20200917
  34. CYAMEMAZINE [Suspect]
     Active Substance: CYAMEMAZINE
     Dosage: 1 DOSAGE FORMS DAILY; 1 DOSAGE FORM AT BEDTIME AR 3 TIME, DURATION :  1 MONTH, STRENGTH: 25 MG
     Dates: start: 20190222
  35. CYAMEMAZINE [Suspect]
     Active Substance: CYAMEMAZINE
     Dosage: 1 DOSAGE FORMS DAILY; 1 DOSAGE FORM IN THE EVENING, STRENGTH: 25 MG, FREQUENCY TIME : 1 DAY
     Dates: start: 20220121
  36. CYAMEMAZINE [Suspect]
     Active Substance: CYAMEMAZINE
     Dosage: 25 MILLIGRAM DAILY; IN THE EVENING, UNIT DOSE: 25 MG, STRENGTH: 25 MG, FREQUENCY TIME : 1 DAY
     Dates: start: 20200120
  37. CYAMEMAZINE [Suspect]
     Active Substance: CYAMEMAZINE
     Dosage: 1 DOSAGE FORMS DAILY; 1 DOSAGE FORM AT BEDTIME AR 2 TIME, STRENGTH: 25 MG, DURATION : 1 MONTH, FREQU
     Dates: start: 20190520
  38. CYAMEMAZINE [Suspect]
     Active Substance: CYAMEMAZINE
     Dosage: 1 DOSAGE FORMS DAILY; 1 DOSAGE FORM AT BEDTIME, STRENGTH: 25 MG, FREQUENCY TIME : 1 DAY, DURATION :
     Dates: start: 20180212
  39. CYAMEMAZINE [Suspect]
     Active Substance: CYAMEMAZINE
     Dosage: 1 DOSAGE FORMS DAILY; 1 DOSAGE FORM IN THE EVENING, STRENGTH: 25 MG, FREQUENCY TIME : 1 DAY
     Dates: start: 20220201
  40. CYAMEMAZINE [Suspect]
     Active Substance: CYAMEMAZINE
     Dosage: 25 MILLIGRAM DAILY; IN THE EVENING A R 3/TIME, UNIT DOSE: 25 MG, STRENGTH: 25 MG, FREQUENCY TIME : 1
     Dates: start: 20200619
  41. CYAMEMAZINE [Suspect]
     Active Substance: CYAMEMAZINE
     Dosage: 1 DOSAGE FORMS DAILY; 1 DOSAGE FORM AT BEDTIME AR 2 TIME, FREQUENCY TIME : 1 DAY, DURATION : 1 MONTH
     Dates: start: 20190829
  42. CYAMEMAZINE [Suspect]
     Active Substance: CYAMEMAZINE
     Dosage: 1 DOSAGE FORMS DAILY; 1 TABLET AT BEDTIME, FREQUENCY TIME : 1 DAY, DURATION : 3 MONTH, STRENGTH: 25
     Dates: start: 20180109
  43. CYAMEMAZINE [Suspect]
     Active Substance: CYAMEMAZINE
     Dosage: 1 DOSAGE FORMS DAILY; 1 DOSAGE FORM AT BEDTIME, FREQUENCY TIME : 1 DAY, STRENGTH: 25 MG
     Dates: start: 20180523
  44. CYAMEMAZINE [Suspect]
     Active Substance: CYAMEMAZINE
     Dosage: 1 DOSAGE FORMS DAILY; 1 DOSAGE FORM AT BEDTIME, STRENGTH: 25 MG, FREQUENCY TIME : 1 DAY
     Dates: start: 20181129
  45. CYAMEMAZINE [Suspect]
     Active Substance: CYAMEMAZINE
     Indication: Product used for unknown indication
     Dosage: 25 MILLIGRAM DAILY; 25 MG, QD
     Route: 065
     Dates: start: 20200417
  46. CYAMEMAZINE [Suspect]
     Active Substance: CYAMEMAZINE
     Dosage: 25 MILLIGRAM DAILY; 25 MG, QD, DURATION : 1 MONTH
     Route: 065
     Dates: start: 20180426
  47. CYAMEMAZINE [Suspect]
     Active Substance: CYAMEMAZINE
     Dosage: 25 MILLIGRAM DAILY; 25 MG, QD, DURATION : 1 MONTH
     Route: 065
     Dates: start: 20190222
  48. CYAMEMAZINE [Suspect]
     Active Substance: CYAMEMAZINE
     Dosage: 25 MILLIGRAM DAILY; 25 MG, QD
     Route: 065
     Dates: start: 20220201
  49. CYAMEMAZINE [Suspect]
     Active Substance: CYAMEMAZINE
     Dosage: 25 MILLIGRAM DAILY; 25 MG, QD, DURATION :1 MONTH
     Route: 065
     Dates: start: 20191121
  50. CYAMEMAZINE [Suspect]
     Active Substance: CYAMEMAZINE
     Dosage: .5 DOSAGE FORMS DAILY; 0.5 DOSAGE FORM, QD
     Route: 065
     Dates: start: 20171017
  51. CYAMEMAZINE [Suspect]
     Active Substance: CYAMEMAZINE
     Dosage: UNK, THERAPY START DATE : ASKU
  52. CYAMEMAZINE [Suspect]
     Active Substance: CYAMEMAZINE
     Dosage: 25 MILLIGRAM DAILY; 25 MG, QD, DURATION : 6 MONTH
     Route: 065
     Dates: start: 20180828
  53. CYAMEMAZINE [Suspect]
     Active Substance: CYAMEMAZINE
     Dosage: 25 MILLIGRAM DAILY; 25 MG, QD, DURATION : 1 MONTH
     Route: 065
     Dates: start: 20190520
  54. CYAMEMAZINE [Suspect]
     Active Substance: CYAMEMAZINE
     Dosage: 25 MILLIGRAM DAILY; 25 MG, QD, DURATION : 3 MONTHS
     Route: 065
     Dates: start: 20180109
  55. CYAMEMAZINE [Suspect]
     Active Substance: CYAMEMAZINE
     Dosage: 25 MILLIGRAM DAILY; 25 MG, QD
     Route: 065
     Dates: start: 20210930
  56. CYAMEMAZINE [Suspect]
     Active Substance: CYAMEMAZINE
     Dosage: 25 MILLIGRAM DAILY; 25 MG, QD
     Route: 065
     Dates: start: 20200917
  57. CYAMEMAZINE [Suspect]
     Active Substance: CYAMEMAZINE
     Dosage: 25 MILLIGRAM DAILY; 25 MG, QD
     Route: 065
     Dates: start: 20180615
  58. CYAMEMAZINE [Suspect]
     Active Substance: CYAMEMAZINE
     Dosage: 25 MILLIGRAM DAILY; 25 MG, QD
     Route: 065
     Dates: start: 20180904
  59. CYAMEMAZINE [Suspect]
     Active Substance: CYAMEMAZINE
     Dosage: 20 MILLIGRAM DAILY; 20 MG, QD
     Route: 065
     Dates: start: 20180523
  60. CYAMEMAZINE [Suspect]
     Active Substance: CYAMEMAZINE
     Dosage: 25 MILLIGRAM DAILY; 25 MG, QD, DURATION : 1 MONTH
     Route: 065
     Dates: start: 20190829
  61. CYAMEMAZINE [Suspect]
     Active Substance: CYAMEMAZINE
     Dosage: 25 MILLIGRAM DAILY; 25 MG, QD
     Route: 065
     Dates: start: 20200504
  62. CYAMEMAZINE [Suspect]
     Active Substance: CYAMEMAZINE
     Dosage: 25 MILLIGRAM DAILY; 25 MG, QD
     Route: 065
     Dates: start: 20210625
  63. CYAMEMAZINE [Suspect]
     Active Substance: CYAMEMAZINE
     Dosage: 25 MILLIGRAM DAILY; 25 MG, QD
     Route: 065
     Dates: start: 20210917
  64. CYAMEMAZINE [Suspect]
     Active Substance: CYAMEMAZINE
     Dosage: 25 MILLIGRAM DAILY; 25 MG, QD
     Route: 065
     Dates: start: 20220408
  65. CYAMEMAZINE [Suspect]
     Active Substance: CYAMEMAZINE
     Dosage: 25 MILLIGRAM DAILY; 25 MG, QD
     Route: 065
     Dates: start: 20180212
  66. CYAMEMAZINE [Suspect]
     Active Substance: CYAMEMAZINE
     Dosage: 25 MILLIGRAM DAILY; 25 MG, QD
     Route: 065
     Dates: start: 20180116
  67. CYAMEMAZINE [Suspect]
     Active Substance: CYAMEMAZINE
     Dosage: 25 MILLIGRAM DAILY; 25 MG, QD
     Route: 065
     Dates: start: 20200120
  68. CYAMEMAZINE [Suspect]
     Active Substance: CYAMEMAZINE
     Dosage: 25 MILLIGRAM DAILY; 25 MG, QD
     Route: 065
     Dates: start: 20201228
  69. CYAMEMAZINE [Suspect]
     Active Substance: CYAMEMAZINE
     Dosage: 25 MILLIGRAM DAILY; 25 MG, QD
     Route: 065
     Dates: start: 20200619
  70. CYAMEMAZINE [Suspect]
     Active Substance: CYAMEMAZINE
     Dosage: 30 DROPS
     Route: 065
     Dates: start: 20210421
  71. CYAMEMAZINE [Suspect]
     Active Substance: CYAMEMAZINE
     Dosage: 25 MILLIGRAM DAILY; 25 MG, QD
     Route: 065
     Dates: start: 20220121
  72. CYAMEMAZINE [Suspect]
     Active Substance: CYAMEMAZINE
     Dosage: 25 MILLIGRAM DAILY; 25 MG, QD
     Route: 065
     Dates: start: 20190307
  73. CYAMEMAZINE [Suspect]
     Active Substance: CYAMEMAZINE
     Dosage: 25 MILLIGRAM DAILY; 25 MG, QD
     Route: 065
     Dates: start: 20181129
  74. TRAMADOL HYDROCHLORIDE [Suspect]
     Active Substance: TRAMADOL HYDROCHLORIDE
     Indication: Product used for unknown indication
     Dosage: UNK, THERAPY END DATE : ASKU
     Route: 065
     Dates: start: 20160722
  75. TRAMADOL HYDROCHLORIDE [Suspect]
     Active Substance: TRAMADOL HYDROCHLORIDE
     Dosage: 1 DOSAGE FORMS DAILY; 1 DOSAGE FORM, QD, THERAPY END DATE : ASKU
     Route: 065
     Dates: start: 20160704
  76. TRAMADOL HYDROCHLORIDE [Suspect]
     Active Substance: TRAMADOL HYDROCHLORIDE
     Dosage: UNK, THERAPY END DATE : ASKU
     Route: 065
     Dates: start: 20170529
  77. TRAMADOL HYDROCHLORIDE [Suspect]
     Active Substance: TRAMADOL HYDROCHLORIDE
     Dosage: UNK, THERAPY END DATE : ASKU
     Route: 065
     Dates: start: 20161004
  78. TRAMADOL HYDROCHLORIDE [Suspect]
     Active Substance: TRAMADOL HYDROCHLORIDE
     Dosage: UNK, THERAPY END DATE : ASKU
     Route: 065
     Dates: start: 20160818
  79. PREDNISOLONE SODIUM METAZOATE [Suspect]
     Active Substance: PREDNISOLONE SODIUM METAZOATE
     Indication: Product used for unknown indication
     Dosage: UNK DOSAGE FORM, UNIT DOSE: 4 DF, THERAPY END DATE : ASKU, DURATION : 1 WEEK
     Route: 065
     Dates: start: 20160617
  80. ACUPAN [Suspect]
     Active Substance: NEFOPAM HYDROCHLORIDE
     Indication: Product used for unknown indication
     Dosage: 60 MILLIGRAM DAILY; 20 MG, TID, AMPULE
     Route: 065
     Dates: start: 20200917
  81. ACUPAN [Suspect]
     Active Substance: NEFOPAM HYDROCHLORIDE
     Dosage: 60 MILLIGRAM DAILY; 20 MG, TID, AMPULE
     Route: 065
     Dates: start: 20180904
  82. ACUPAN [Suspect]
     Active Substance: NEFOPAM HYDROCHLORIDE
     Dosage: 60 MILLIGRAM DAILY; 20 MG, TID, AMPULE, DURATION : 1 MONTH
     Route: 065
     Dates: start: 20181129
  83. ACUPAN [Suspect]
     Active Substance: NEFOPAM HYDROCHLORIDE
     Dosage: 60 MILLIGRAM DAILY; 20 MG, TID, AMPOULE
     Route: 065
     Dates: start: 20190307
  84. ACUPAN [Suspect]
     Active Substance: NEFOPAM HYDROCHLORIDE
     Dosage: 60 MILLIGRAM DAILY; 20 MG, TID, AMPOULE
     Route: 065
     Dates: start: 20180523
  85. ACUPAN [Suspect]
     Active Substance: NEFOPAM HYDROCHLORIDE
     Dosage: 60 MILLIGRAM DAILY; 20 MG, TID, AMPOULE
     Route: 065
     Dates: start: 20180109
  86. ACUPAN [Suspect]
     Active Substance: NEFOPAM HYDROCHLORIDE
     Dosage: 60 MILLIGRAM DAILY; 20 MG, TID, AMPOULE
     Route: 065
     Dates: start: 20200120
  87. ACUPAN [Suspect]
     Active Substance: NEFOPAM HYDROCHLORIDE
     Dosage: 60 MILLIGRAM DAILY; 20 MG, TID, AMPOULE
     Route: 065
     Dates: start: 20200504
  88. ACUPAN [Suspect]
     Active Substance: NEFOPAM HYDROCHLORIDE
     Dosage: 60 MILLIGRAM DAILY; 20 MG, TID, AMPOULE
     Route: 065
     Dates: start: 20190520
  89. ACUPAN [Suspect]
     Active Substance: NEFOPAM HYDROCHLORIDE
     Dosage: 60 MILLIGRAM DAILY; 20 MG, TID, AMPOULE
     Route: 065
     Dates: start: 20180828
  90. ACUPAN [Suspect]
     Active Substance: NEFOPAM HYDROCHLORIDE
     Dosage: 60 MILLIGRAM DAILY; 20 MG, TID, AMPOULE
     Route: 065
     Dates: start: 20170904
  91. ACUPAN [Suspect]
     Active Substance: NEFOPAM HYDROCHLORIDE
     Dosage: 60 MILLIGRAM DAILY; 20 MG, TID, AMPOULE
     Route: 065
     Dates: start: 20180212
  92. ACUPAN [Suspect]
     Active Substance: NEFOPAM HYDROCHLORIDE
     Dosage: 60 MILLIGRAM DAILY; 20 MG, TID, AMPOULE
     Route: 065
     Dates: start: 20190903
  93. ACUPAN [Suspect]
     Active Substance: NEFOPAM HYDROCHLORIDE
     Dosage: 60 MILLIGRAM DAILY; 20 MG, TID, AMPOULE
     Route: 065
     Dates: start: 20180426
  94. PIROXICAM BETADEX [Suspect]
     Active Substance: PIROXICAM BETADEX
     Indication: Product used for unknown indication
     Dosage: 1 DOSAGE FORMS DAILY; 1 DOSAGE FORM, QD, THERAPY END DATE : ASKU
     Route: 065
     Dates: start: 20160722
  95. PIROXICAM BETADEX [Suspect]
     Active Substance: PIROXICAM BETADEX
     Dosage: 1 DOSAGE FORMS DAILY; 1 DOSAGE FORM, QD, THERAPY END DATE : ASKU
     Route: 065
     Dates: start: 20160704
  96. ACETAMINOPHEN\BELLADONNA LEAF\CAFFEINE\OPIUM [Suspect]
     Active Substance: ACETAMINOPHEN\BELLADONNA LEAF\CAFFEINE\OPIUM
     Indication: Product used for unknown indication
     Dosage: UNK, DURATION : 2 MONTHS, THERAPY END DATE : ASKU
     Dates: start: 20161208
  97. KETOPROFEN [Suspect]
     Active Substance: KETOPROFEN
     Indication: Product used for unknown indication
     Dosage: 100 MILLIGRAM DAILY; 50 MG, BID
     Route: 065
     Dates: start: 20170104
  98. DOLIPRANE [Suspect]
     Active Substance: ACETAMINOPHEN
     Indication: Product used for unknown indication
     Dosage: 4 GRAM DAILY; 1 G, QID, THERAPY END DATE : ASKU
     Route: 065
     Dates: start: 20220201
  99. DOLIPRANE [Suspect]
     Active Substance: ACETAMINOPHEN
     Dosage: 1 GRAM DAILY; 1 G, QD, THERAPY END DATE : ASKU
     Route: 065
     Dates: start: 20200917
  100. DOLIPRANE [Suspect]
     Active Substance: ACETAMINOPHEN
     Dosage: 4 GRAM DAILY; 1 G, QID, THERAPY END DATE : ASKU
     Route: 065
     Dates: start: 20201228
  101. DOLIPRANE [Suspect]
     Active Substance: ACETAMINOPHEN
     Dosage: 4 GRAM DAILY; 1 G, QID, THERAPY END DATE : ASKU
     Route: 065
     Dates: start: 20210917
  102. DOLIPRANE [Suspect]
     Active Substance: ACETAMINOPHEN
     Dosage: 4 GRAM DAILY; 1 G, QID, THERAPY END DATE : ASKU
     Route: 065
     Dates: start: 20200818
  103. DOLIPRANE [Suspect]
     Active Substance: ACETAMINOPHEN
     Dosage: 4 GRAM DAILY; 1 G, QID, THERAPY END DATE : ASKU
     Route: 065
     Dates: start: 20210421
  104. DOLIPRANE [Suspect]
     Active Substance: ACETAMINOPHEN
     Dosage: 8 DOSAGE FORMS DAILY; 2 DOSAGE FORM, QID
     Route: 065
     Dates: start: 20160622
  105. AMOXICILLIN\CLAVULANIC ACID [Suspect]
     Active Substance: AMOXICILLIN\CLAVULANIC ACID
     Indication: Product used for unknown indication
     Dosage: 2 DOSAGE FORMS DAILY; 1 DOSAGE FORM, BID, AMOXICILLINE/ACIDE CLAVULANIQ. SANDOZ, THERAPY END DATE :
     Route: 065
     Dates: start: 20160616
  106. CYAMEMAZINE [Suspect]
     Active Substance: CYAMEMAZINE
     Indication: Product used for unknown indication
     Dosage: 30 GTT DAILY; 30 DROPS IN THE EVENING
     Dates: start: 20210421
  107. ESOMEPRAZOLE [Suspect]
     Active Substance: ESOMEPRAZOLE
     Indication: Product used for unknown indication
     Dosage: 20 MILLIGRAM DAILY; 20 MG, QD, DURATION : 30 DAYS
     Route: 065
     Dates: start: 20170104
  108. ACETAMINOPHEN\CODEINE PHOSPHATE [Suspect]
     Active Substance: ACETAMINOPHEN\CODEINE PHOSPHATE
     Indication: Product used for unknown indication
     Dosage: UNK, THERAPY END DATE : ASKU, DURATION : 15 DAYS
     Route: 065
     Dates: start: 20160622
  109. AMITRIPTYLINE HYDROCHLORIDE [Suspect]
     Active Substance: AMITRIPTYLINE HYDROCHLORIDE
     Indication: Product used for unknown indication
     Dosage: 25 MILLIGRAM DAILY; 25 MG, QD, THERAPY START DATE AND END DATE : ASKU, DURATION : 30 DAYS
     Route: 048
  110. AMITRIPTYLINE HYDROCHLORIDE [Suspect]
     Active Substance: AMITRIPTYLINE HYDROCHLORIDE
     Indication: Product used for unknown indication
     Dosage: .5 MILLIGRAM DAILY; 0.5 MG, QD, THERAPY END DATE : ASKU, DURATION : 7 DAYS
     Route: 048
     Dates: start: 20170104
  111. AMITRIPTYLINE HYDROCHLORIDE [Suspect]
     Active Substance: AMITRIPTYLINE HYDROCHLORIDE
     Indication: Product used for unknown indication
     Dosage: 40 MILLIGRAM DAILY; 40 MG, QD, THERAPY END DATE : ASKU
     Route: 048
     Dates: start: 20200818
  112. AMITRIPTYLINE HYDROCHLORIDE [Suspect]
     Active Substance: AMITRIPTYLINE HYDROCHLORIDE
     Indication: Product used for unknown indication
     Dosage: 100 MILLIGRAM DAILY; 100 MG, QD, THERAPY END DATE : ASKU
     Route: 048
     Dates: start: 20180220
  113. AMITRIPTYLINE HYDROCHLORIDE [Suspect]
     Active Substance: AMITRIPTYLINE HYDROCHLORIDE
     Dosage: 50 MILLIGRAM DAILY; 50 MG, QD, THERAPY START DATE AND END DATE : ASKU, DURATION : 1 MONTH
     Route: 048
  114. AMITRIPTYLINE HYDROCHLORIDE [Suspect]
     Active Substance: AMITRIPTYLINE HYDROCHLORIDE
     Dosage: 50 GRAM DAILY; 50 G, QD, THERAPY END DATE : ASKU
     Route: 048
     Dates: start: 20170320
  115. AMITRIPTYLINE HYDROCHLORIDE [Suspect]
     Active Substance: AMITRIPTYLINE HYDROCHLORIDE
     Dosage: 40 MILLIGRAM DAILY; 40 MG, QD, THERAPY END DATE : ASKU
     Route: 048
     Dates: start: 20201228
  116. AMITRIPTYLINE HYDROCHLORIDE [Suspect]
     Active Substance: AMITRIPTYLINE HYDROCHLORIDE
     Dosage: 50 MILLIGRAM DAILY; 50 MG, QD, THERAPY END DATE : ASKU
     Route: 048
     Dates: start: 20170330
  117. AMITRIPTYLINE HYDROCHLORIDE [Suspect]
     Active Substance: AMITRIPTYLINE HYDROCHLORIDE
     Dosage: 30 DROPS, THERAPY END DATE : ASKU
     Route: 048
     Dates: start: 20220121
  118. AMITRIPTYLINE HYDROCHLORIDE [Suspect]
     Active Substance: AMITRIPTYLINE HYDROCHLORIDE
     Dosage: UNK UNK, QD, THERAPY END DATE : ASKU
     Route: 048
     Dates: start: 20200818
  119. AMITRIPTYLINE HYDROCHLORIDE [Suspect]
     Active Substance: AMITRIPTYLINE HYDROCHLORIDE
     Dosage: 30 DROPS, THERAPY END DATE : ASKU
     Route: 048
     Dates: start: 20201228
  120. AMITRIPTYLINE HYDROCHLORIDE [Suspect]
     Active Substance: AMITRIPTYLINE HYDROCHLORIDE
     Dosage: 30 DROPS, THERAPY END DATE : ASKU
     Route: 048
     Dates: start: 20220201
  121. AMITRIPTYLINE HYDROCHLORIDE [Suspect]
     Active Substance: AMITRIPTYLINE HYDROCHLORIDE
     Dosage: 30 DROPS, THERAPY END DATE : ASKU
     Route: 048
     Dates: start: 20220408
  122. SACCHAROMYCES CEREVISIAE [Suspect]
     Active Substance: SACCHAROMYCES CEREVISIAE
     Indication: Product used for unknown indication
     Dosage: UNK, THERAPY END DATE : ASKU, DURATION : 7 DAYS
     Route: 065
     Dates: start: 20160622
  123. DAFALGAN [Suspect]
     Active Substance: ACETAMINOPHEN
     Indication: Product used for unknown indication
     Dosage: 3 GRAM DAILY; 1 G, TID
     Route: 065
     Dates: start: 20160722
  124. DAFALGAN [Suspect]
     Active Substance: ACETAMINOPHEN
     Dosage: 3 GRAM DAILY; 1 G, TID
     Route: 065
     Dates: start: 20160704
  125. DAFALGAN [Suspect]
     Active Substance: ACETAMINOPHEN
     Dosage: 3 GRAM DAILY; 1 G, TID, DURATION : 2 MONTH
     Route: 065
     Dates: start: 20160818
  126. DAFALGAN [Suspect]
     Active Substance: ACETAMINOPHEN
     Dosage: 3 GRAM DAILY; 1 G, TID, DURATION : 3 MONTH
     Route: 065
     Dates: start: 20170529
  127. INDOMETHACIN [Suspect]
     Active Substance: INDOMETHACIN
     Indication: Product used for unknown indication
     Dosage: 150 MILLIGRAM DAILY; 75 MG, BID, DURATION : 30 DAYS, THERAPY END DATE : ASKU
     Route: 065
     Dates: start: 20170330
  128. TOPIRAMATE [Suspect]
     Active Substance: TOPIRAMATE
     Indication: Product used for unknown indication
     Dosage: 30 MILLIGRAM DAILY; 15 MG, BID, DURATION : 1 MONTH
     Route: 065
     Dates: start: 20200120
  129. AUGMENTIN [Suspect]
     Active Substance: AMOXICILLIN\CLAVULANATE POTASSIUM
     Indication: Product used for unknown indication
     Dosage: 3 DOSAGE FORMS DAILY; 1 DOSAGE FORM, TID, THERAPY END DATE : ASKU, DURATION : 5 DAYS, SACHET
     Route: 065
     Dates: start: 20160622
  130. CYMBALTA [Suspect]
     Active Substance: DULOXETINE HYDROCHLORIDE
     Indication: Product used for unknown indication
     Dosage: 120 MILLIGRAM DAILY; 60 MG, BID
     Route: 065
     Dates: start: 20200917
  131. CYMBALTA [Suspect]
     Active Substance: DULOXETINE HYDROCHLORIDE
     Indication: Product used for unknown indication
     Dosage: 120 MG
     Route: 065
     Dates: start: 20200619
  132. CYMBALTA [Suspect]
     Active Substance: DULOXETINE HYDROCHLORIDE
     Dosage: 120 MILLIGRAM DAILY; 60 MG, BID
     Route: 065
     Dates: start: 20220201
  133. CYMBALTA [Suspect]
     Active Substance: DULOXETINE HYDROCHLORIDE
     Dosage: 120 MILLIGRAM DAILY; 120 MG, QD
     Route: 065
     Dates: start: 20190903
  134. CYMBALTA [Suspect]
     Active Substance: DULOXETINE HYDROCHLORIDE
     Dosage: 120 MILLIGRAM DAILY; 120 MG, QD, DURATION : 1 MONTH
     Route: 065
     Dates: start: 20180420
  135. CYMBALTA [Suspect]
     Active Substance: DULOXETINE HYDROCHLORIDE
     Dosage: 120 MILLIGRAM DAILY; 60 MG, BID
     Route: 065
     Dates: start: 20220121
  136. CYMBALTA [Suspect]
     Active Substance: DULOXETINE HYDROCHLORIDE
     Dosage: 120 MILLIGRAM DAILY; 120 MG, QD
     Route: 065
     Dates: start: 20180828
  137. CYMBALTA [Suspect]
     Active Substance: DULOXETINE HYDROCHLORIDE
     Dosage: 120 MILLIGRAM DAILY; 120 MG, QD
     Route: 065
     Dates: start: 20180615
  138. CYMBALTA [Suspect]
     Active Substance: DULOXETINE HYDROCHLORIDE
     Dosage: 120 MILLIGRAM DAILY; 60 MG, BID
     Route: 065
     Dates: start: 20210917
  139. CYMBALTA [Suspect]
     Active Substance: DULOXETINE HYDROCHLORIDE
     Dosage: 120 MILLIGRAM DAILY; 120 MG, QD
     Route: 065
     Dates: start: 20190222
  140. CYMBALTA [Suspect]
     Active Substance: DULOXETINE HYDROCHLORIDE
     Dosage: 60 MILLIGRAM DAILY; 60 MG, QD, DURATION : 1 MONTH
     Route: 065
     Dates: start: 20170522
  141. CYMBALTA [Suspect]
     Active Substance: DULOXETINE HYDROCHLORIDE
     Dosage: 120 MILLIGRAM DAILY; 60 MG, BID
     Route: 065
     Dates: start: 20220408
  142. CYMBALTA [Suspect]
     Active Substance: DULOXETINE HYDROCHLORIDE
     Dosage: 120 MILLIGRAM DAILY; 120 MG, QD
     Route: 065
     Dates: start: 20191121
  143. CYMBALTA [Suspect]
     Active Substance: DULOXETINE HYDROCHLORIDE
     Dosage: 120 MILLIGRAM DAILY; 60 MG, BID
     Route: 065
     Dates: start: 20210930
  144. CYMBALTA [Suspect]
     Active Substance: DULOXETINE HYDROCHLORIDE
     Dosage: 120 MILLIGRAM DAILY; 120 MG, QD
     Route: 065
     Dates: start: 20190520
  145. CYMBALTA [Suspect]
     Active Substance: DULOXETINE HYDROCHLORIDE
     Dosage: 120 MG
     Route: 065
     Dates: start: 20200504
  146. CYMBALTA [Suspect]
     Active Substance: DULOXETINE HYDROCHLORIDE
     Dosage: 120 MILLIGRAM DAILY; 120 MG, QD
     Route: 065
     Dates: start: 20190307
  147. CYMBALTA [Suspect]
     Active Substance: DULOXETINE HYDROCHLORIDE
     Dosage: 120 MILLIGRAM DAILY; 120 MG, QD
     Route: 065
     Dates: start: 20181129
  148. CYMBALTA [Suspect]
     Active Substance: DULOXETINE HYDROCHLORIDE
     Dosage: 120 MILLIGRAM DAILY; 120 MG, QD
     Route: 065
     Dates: start: 20180523
  149. CYMBALTA [Suspect]
     Active Substance: DULOXETINE HYDROCHLORIDE
     Dosage: 120 MILLIGRAM DAILY; 60 MG, BID
     Route: 065
     Dates: start: 20210421
  150. CYMBALTA [Suspect]
     Active Substance: DULOXETINE HYDROCHLORIDE
     Dosage: 60 MILLIGRAM DAILY; 60 MG, QD
     Route: 065
     Dates: start: 20171017
  151. CYMBALTA [Suspect]
     Active Substance: DULOXETINE HYDROCHLORIDE
     Dosage: 120 MILLIGRAM DAILY; 60 MG, BID, DURATION : 1 MONTH
     Route: 065
     Dates: start: 20200120
  152. CYMBALTA [Suspect]
     Active Substance: DULOXETINE HYDROCHLORIDE
     Dosage: 120 MILLIGRAM DAILY; 120 MG, QD
     Route: 065
     Dates: start: 20180212
  153. CYMBALTA [Suspect]
     Active Substance: DULOXETINE HYDROCHLORIDE
     Dosage: 120 MILLIGRAM DAILY; 120 MG, QD
     Route: 065
     Dates: start: 20180426
  154. CYMBALTA [Suspect]
     Active Substance: DULOXETINE HYDROCHLORIDE
     Dosage: 120 MG
     Route: 065
     Dates: start: 20200417
  155. CYMBALTA [Suspect]
     Active Substance: DULOXETINE HYDROCHLORIDE
     Dosage: 120 MILLIGRAM DAILY; 120 MG, QD
     Route: 065
     Dates: start: 20181129
  156. CYMBALTA [Suspect]
     Active Substance: DULOXETINE HYDROCHLORIDE
     Dosage: 120 MILLIGRAM DAILY; 120 MG, QD
     Route: 065
     Dates: start: 20190829
  157. CYMBALTA [Suspect]
     Active Substance: DULOXETINE HYDROCHLORIDE
     Dosage: 60 MILLIGRAM DAILY; 60 MG, QD, DURATION : 1 MONTH
     Route: 065
     Dates: start: 20170904
  158. CYMBALTA [Suspect]
     Active Substance: DULOXETINE HYDROCHLORIDE
     Dosage: 120 MILLIGRAM DAILY; 120 MG, QD
     Route: 065
     Dates: start: 20180904
  159. CYMBALTA [Suspect]
     Active Substance: DULOXETINE HYDROCHLORIDE
     Dosage: 120 MILLIGRAM DAILY; 60 MG, BID
     Route: 065
     Dates: start: 20201228
  160. CYMBALTA [Suspect]
     Active Substance: DULOXETINE HYDROCHLORIDE
     Dosage: 120 MILLIGRAM DAILY; 120 MG, QD
     Route: 065
     Dates: start: 20180116
  161. CYMBALTA [Suspect]
     Active Substance: DULOXETINE HYDROCHLORIDE
     Dosage: 60 MILLIGRAM DAILY; 60 MG, QD
     Route: 065
     Dates: start: 20210625
  162. CYMBALTA [Suspect]
     Active Substance: DULOXETINE HYDROCHLORIDE
     Dosage: 120 MILLIGRAM DAILY; 120 MG, QD
     Route: 065
     Dates: start: 20180109
  163. CYMBALTA [Suspect]
     Active Substance: DULOXETINE HYDROCHLORIDE
     Dosage: 120 MILLIGRAM DAILY; 120 MG, QD
     Route: 065
     Dates: start: 20180220
  164. CYMBALTA [Suspect]
     Active Substance: DULOXETINE HYDROCHLORIDE
     Dosage: 1 DOSAGE FORMS DAILY; 1 DOSAGE FORM, QD, DURATION : 1 MONTH
     Route: 065
     Dates: start: 20170810
  165. CYMBALTA [Suspect]
     Active Substance: DULOXETINE HYDROCHLORIDE
     Dosage: 30 GRAM DAILY; 30 G, QD
     Dates: start: 20170418

REACTIONS (3)
  - White matter lesion [Not Recovered/Not Resolved]
  - Depression [Not Recovered/Not Resolved]
  - Diffuse axonal injury [Not Recovered/Not Resolved]
